FAERS Safety Report 4457235-1 (Version None)
Quarter: 2004Q3

REPORT INFORMATION
  Report Type: 
  Country: None (occurrence: None)
  Receive Date: 20040922
  Receipt Date: 20040915
  Transmission Date: 20050211
  Serious: Yes (Death)
  Sender: FDA-Public Use
  Company Number: 2004233916US

PATIENT
  Age: 43 Year
  Sex: Female

DRUGS (2)
  1. XANAX [Suspect]
     Dosage: 1 MG, ORAL
     Route: 048
     Dates: end: 20040429
  2. DURAGESIC [Concomitant]

REACTIONS (3)
  - COMPLETED SUICIDE [None]
  - DRUG DEPENDENCE [None]
  - OVERDOSE [None]
